FAERS Safety Report 25858166 (Version 1)
Quarter: 2025Q3

REPORT INFORMATION
  Report Type: Spontaneous
  Country: US (occurrence: US)
  Receive Date: 20250929
  Receipt Date: 20250929
  Transmission Date: 20251021
  Serious: No
  Sender: ALEXION PHARMACEUTICALS
  Company Number: US-AstraZeneca-CH-00953636A

PATIENT
  Sex: Female

DRUGS (3)
  1. STRENSIQ [Suspect]
     Active Substance: ASFOTASE ALFA
     Indication: Hypophosphatasia
  2. TYMLOS [Concomitant]
     Active Substance: ABALOPARATIDE
     Route: 065
  3. VITAMIN D [Concomitant]
     Active Substance: VITAMIN D NOS
     Dosage: 20000 IU INTERNATIONAL UNIT(S), QD
     Route: 065

REACTIONS (5)
  - Metabolic disorder [Recovering/Resolving]
  - Insomnia [Recovering/Resolving]
  - Weight decreased [Recovered/Resolved]
  - Tachycardia [Recovering/Resolving]
  - Weight increased [Not Recovered/Not Resolved]

NARRATIVE: CASE EVENT DATE: 20250101
